FAERS Safety Report 4942790-5 (Version None)
Quarter: 2006Q1

REPORT INFORMATION
  Report Type: 
  Country: None (occurrence: None)
  Receive Date: 20060314
  Receipt Date: 20060302
  Transmission Date: 20060701
  Serious: Yes (Other)
  Sender: FDA-Public Use
  Company Number: GB-BRISTOL-MYERS SQUIBB COMPANY-13302450

PATIENT
  Age: 92 Year
  Sex: Female
  Weight: 70 kg

DRUGS (6)
  1. HYDREA [Suspect]
     Indication: ESSENTIAL THROMBOCYTHAEMIA
     Route: 048
     Dates: start: 20060215
  2. WARFARIN [Concomitant]
     Route: 048
     Dates: start: 20051001
  3. ATORVASTATIN CALCIUM [Concomitant]
     Route: 048
     Dates: start: 20050301
  4. FUROSEMIDE [Concomitant]
     Route: 048
     Dates: start: 20050401
  5. OMEPRAZOLE [Concomitant]
     Route: 048
     Dates: start: 20050321
  6. PERINDOPRIL [Concomitant]
     Route: 048
     Dates: start: 20050301

REACTIONS (2)
  - ATRIOVENTRICULAR BLOCK COMPLETE [None]
  - HEART RATE DECREASED [None]
